FAERS Safety Report 16181145 (Version 7)
Quarter: 2019Q3

REPORT INFORMATION
  Report Type: Report from Study
  Country: JP (occurrence: JP)
  Receive Date: 20190410
  Receipt Date: 20190930
  Transmission Date: 20191004
  Serious: Yes (Hospitalization)
  Sender: FDA-Public Use
  Company Number: JP-DSJP-DSJ-2019-106925AA

PATIENT
  Age: 71 Year
  Sex: Male
  Weight: 77 kg

DRUGS (53)
  1. ATORVASTATIN                       /01326102/ [Concomitant]
     Active Substance: ATORVASTATIN
     Dosage: UNK
     Route: 048
     Dates: start: 20190730
  2. LEVOFLOXACIN HEMIHYDRATE [Concomitant]
     Active Substance: LEVOFLOXACIN
     Dosage: UNK
     Route: 065
     Dates: start: 20190226, end: 20190227
  3. GLUCOSE [Concomitant]
     Active Substance: DEXTROSE
     Dosage: UNK
     Route: 065
     Dates: start: 20190222, end: 20190225
  4. TAKEPRON [Concomitant]
     Active Substance: LANSOPRAZOLE
     Dosage: UNK
     Route: 065
     Dates: start: 20190616, end: 20190618
  5. LANSOPRAZOLE. [Concomitant]
     Active Substance: LANSOPRAZOLE
     Dosage: UNK
     Route: 048
     Dates: start: 20190624
  6. FESIN                              /00023550/ [Concomitant]
     Active Substance: IRON SUCROSE
     Dosage: UNK
     Route: 065
     Dates: start: 20190709, end: 20190709
  7. GLYCEREB [Concomitant]
     Active Substance: FRUCTOSE\GLYCERIN
     Dosage: UNK
     Route: 065
     Dates: start: 20190622
  8. BISOPROLOL                         /00802602/ [Concomitant]
     Active Substance: BISOPROLOL
     Dosage: 2.5 MG, QD
     Route: 048
     Dates: start: 20190716, end: 20190716
  9. HEPARIN [Concomitant]
     Active Substance: HEPARIN SODIUM
     Dosage: 10000IU/DAY
     Route: 041
     Dates: start: 20190118, end: 20190119
  10. EDARAVONE [Concomitant]
     Active Substance: EDARAVONE
     Dosage: UNK
     Route: 065
     Dates: start: 20190622
  11. ZOLPIDEM                           /00914902/ [Concomitant]
     Active Substance: ZOLPIDEM TARTRATE
     Indication: INSOMNIA
     Dosage: UNK
     Route: 065
     Dates: start: 20190122, end: 20190123
  12. ZOLPIDEM                           /00914902/ [Concomitant]
     Active Substance: ZOLPIDEM TARTRATE
     Dosage: 5 MG, QD
     Route: 048
     Dates: start: 20190128, end: 20190609
  13. GLUCAGON G [Concomitant]
     Dosage: UNK
     Route: 065
     Dates: start: 20190610, end: 20190610
  14. GLUCAGON G [Concomitant]
     Dosage: UNK
     Route: 065
     Dates: start: 20190619, end: 20190619
  15. PETHIDINE HYDROCHLORIDE [Concomitant]
     Active Substance: MEPERIDINE HYDROCHLORIDE
     Dosage: UNK
     Route: 065
     Dates: start: 20190225, end: 20190225
  16. MAGMITT [Concomitant]
     Active Substance: MAGNESIUM OXIDE
     Dosage: UNK
     Route: 065
     Dates: start: 20190227, end: 20190610
  17. FERROUS CITRATE NA [Concomitant]
     Active Substance: SODIUM FERROUS CITRATE
     Dosage: UNK
     Route: 065
     Dates: start: 20190704
  18. EDOXABAN OD [Suspect]
     Active Substance: EDOXABAN TOSYLATE
     Indication: ATRIAL FIBRILLATION
     Dosage: 60 MG, QD
     Route: 048
     Dates: start: 20190125, end: 20190222
  19. HEPARIN [Concomitant]
     Active Substance: HEPARIN SODIUM
     Dosage: 10000IU/DAY
     Route: 041
     Dates: start: 20190227, end: 20190301
  20. HEPARIN [Concomitant]
     Active Substance: HEPARIN SODIUM
     Dosage: 7500IU/DAY
     Route: 041
     Dates: start: 20190711, end: 20190712
  21. BELSOMRA [Concomitant]
     Active Substance: SUVOREXANT
     Dosage: UNK
     Route: 065
     Dates: start: 20190611, end: 20190611
  22. MAGNESIUM OXIDE. [Concomitant]
     Active Substance: MAGNESIUM OXIDE
     Indication: CONSTIPATION PROPHYLAXIS
     Dosage: 330 MG, TID
     Route: 048
     Dates: start: 20190610, end: 20190613
  23. FESIN                              /00023550/ [Concomitant]
     Active Substance: IRON SUCROSE
     Dosage: UNK
     Route: 065
     Dates: start: 20190709, end: 20190712
  24. FERROUS CITRATE NA [Concomitant]
     Active Substance: SODIUM FERROUS CITRATE
     Dosage: UNK
     Route: 065
     Dates: start: 20190612, end: 20190613
  25. ELIQUIS [Suspect]
     Active Substance: APIXABAN
     Dosage: 5 MG, BID
     Route: 065
     Dates: start: 20190712
  26. EDOXABAN OD [Suspect]
     Active Substance: EDOXABAN TOSYLATE
     Dosage: 30 MG, QD
     Route: 048
     Dates: start: 20190613, end: 20190615
  27. HEPARIN [Concomitant]
     Active Substance: HEPARIN SODIUM
     Dosage: 5000IU/DAY
     Route: 041
     Dates: start: 20190623, end: 20190626
  28. HEPARIN [Concomitant]
     Active Substance: HEPARIN SODIUM
     Dosage: 7500IU/DAY
     Route: 041
     Dates: start: 20190626, end: 20190627
  29. ATORVASTATIN                       /01326102/ [Concomitant]
     Active Substance: ATORVASTATIN
     Indication: HYPERCHOLESTEROLAEMIA
     Dosage: 5 MG, QD
     Route: 048
     Dates: end: 20190621
  30. ELIQUIS [Suspect]
     Active Substance: APIXABAN
     Dosage: 5 MG, BID
     Route: 065
     Dates: start: 20190705, end: 20190707
  31. EDOXABAN OD [Suspect]
     Active Substance: EDOXABAN TOSYLATE
     Dosage: 60 MG, QD
     Route: 048
     Dates: start: 20190302, end: 20190612
  32. HEPARIN [Concomitant]
     Active Substance: HEPARIN SODIUM
     Dosage: 12500 IU/DAY
     Route: 041
     Dates: start: 20190119, end: 20190125
  33. ALLOPURINOL. [Concomitant]
     Active Substance: ALLOPURINOL
     Indication: HYPERURICAEMIA
     Dosage: 100 MG, QD
     Route: 048
     Dates: end: 20190621
  34. MIDAZOLAM [Concomitant]
     Active Substance: MIDAZOLAM HYDROCHLORIDE
     Dosage: UNK
     Route: 065
     Dates: start: 20190225, end: 20190225
  35. ISOTONIC SODIUM CHLORIDE SOLUTION [Concomitant]
     Active Substance: SODIUM CHLORIDE
     Dosage: UNK
     Route: 065
     Dates: start: 20190709, end: 20190709
  36. BISOPROLOL                         /00802602/ [Concomitant]
     Active Substance: BISOPROLOL
     Indication: HYPERTENSION
     Dosage: 1.25 MG, BID
     Route: 048
     Dates: start: 20190120, end: 20190621
  37. ZOLPIDEM                           /00914902/ [Concomitant]
     Active Substance: ZOLPIDEM TARTRATE
     Dosage: UNK
     Route: 065
     Dates: start: 20190612, end: 20190621
  38. BELSOMRA [Concomitant]
     Active Substance: SUVOREXANT
     Dosage: UNK
     Route: 065
     Dates: start: 20190124, end: 20190127
  39. GLUCAGON G [Concomitant]
     Dosage: UNK
     Route: 065
     Dates: start: 20190225, end: 20190225
  40. MAGMITT [Concomitant]
     Active Substance: MAGNESIUM OXIDE
     Dosage: UNK
     Route: 065
     Dates: start: 20190614, end: 20190621
  41. FESIN                              /00023550/ [Concomitant]
     Active Substance: IRON SUCROSE
     Dosage: UNK
     Route: 065
     Dates: start: 20190222, end: 20190225
  42. GLUCOSE [Concomitant]
     Active Substance: DEXTROSE
     Dosage: UNK
     Route: 065
     Dates: start: 20190614, end: 20190618
  43. GLUCOSE [Concomitant]
     Active Substance: DEXTROSE
     Dosage: UNK
     Route: 065
     Dates: start: 20190709, end: 20190712
  44. DAIKENCHUTO [Concomitant]
     Active Substance: HERBALS
     Dosage: UNK
     Route: 065
     Dates: start: 20190625
  45. ELIQUIS [Suspect]
     Active Substance: APIXABAN
     Dosage: 2.5 MG, BID
     Route: 065
     Dates: start: 20190627, end: 20190704
  46. BISOPROLOL                         /00802602/ [Concomitant]
     Active Substance: BISOPROLOL
     Dosage: 3.125 MG, QD
     Route: 048
     Dates: start: 20190717
  47. HEPARIN [Concomitant]
     Active Substance: HEPARIN SODIUM
     Dosage: 10000IU/DAY
     Route: 041
     Dates: start: 20190708, end: 20190710
  48. EDARAVONE [Concomitant]
     Active Substance: EDARAVONE
     Dosage: UNK
     Route: 065
     Dates: start: 20190118, end: 20190123
  49. LANSOPRAZOLE. [Concomitant]
     Active Substance: LANSOPRAZOLE
     Indication: CHRONIC GASTRITIS
     Dosage: 15 MG, QD
     Route: 048
     Dates: start: 20190122, end: 20190621
  50. FESIN                              /00023550/ [Concomitant]
     Active Substance: IRON SUCROSE
     Dosage: UNK
     Route: 065
     Dates: start: 20190614, end: 20190618
  51. TAKEPRON [Concomitant]
     Active Substance: LANSOPRAZOLE
     Dosage: UNK
     Route: 065
     Dates: start: 20190622, end: 20190623
  52. ISOTONIC SODIUM CHLORIDE SOLUTION [Concomitant]
     Active Substance: SODIUM CHLORIDE
     Dosage: UNK
     Route: 065
     Dates: start: 20190616, end: 20190618
  53. ISOTONIC SODIUM CHLORIDE SOLUTION [Concomitant]
     Active Substance: SODIUM CHLORIDE
     Dosage: UNK
     Route: 065
     Dates: start: 20190622, end: 20190623

REACTIONS (9)
  - Embolic stroke [Recovered/Resolved with Sequelae]
  - Diverticulum intestinal [Not Recovered/Not Resolved]
  - Gastrointestinal haemorrhage [Recovered/Resolved]
  - Epididymitis [Recovering/Resolving]
  - Haematoma muscle [Not Recovered/Not Resolved]
  - Pneumonia aspiration [Recovered/Resolved]
  - Gastrointestinal haemorrhage [Recovered/Resolved]
  - Anaemia [Recovered/Resolved]
  - Vascular pseudoaneurysm [Recovered/Resolved]

NARRATIVE: CASE EVENT DATE: 20190220
